FAERS Safety Report 5317754-2 (Version None)
Quarter: 2007Q2

REPORT INFORMATION
  Report Type: 
  Country: None (occurrence: None)
  Receive Date: 20070502
  Receipt Date: 20070502
  Transmission Date: 20071010
  Serious: Yes (Life-Threatening, Other)
  Sender: FDA-Public Use
  Company Number: None

PATIENT
  Age: 41 Year
  Sex: Male
  Weight: 77.1115 kg

DRUGS (2)
  1. VYTORIN [Suspect]
     Indication: HYPERCHOLESTEROLAEMIA
  2. PHENYTOIN [Concomitant]

REACTIONS (4)
  - CONVULSION [None]
  - DRUG INTERACTION [None]
  - DRUG LEVEL DECREASED [None]
  - ROAD TRAFFIC ACCIDENT [None]
